FAERS Safety Report 9660399 (Version 2)
Quarter: 2013Q4

REPORT INFORMATION
  Report Type: Spontaneous
  Country: US (occurrence: US)
  Receive Date: 20131031
  Receipt Date: 20131031
  Transmission Date: 20140711
  Serious: No
  Sender: FDA-Public Use
  Company Number: US-PURDUE-USA-2009-0037136

PATIENT
  Sex: Female
  Weight: 134.24 kg

DRUGS (10)
  1. OXYCONTIN TABLETS [Suspect]
     Indication: BACK PAIN
     Dosage: 160 MG, TID
     Dates: start: 2004, end: 20090221
  2. OXYCONTIN TABLETS [Suspect]
     Dosage: 40 MG, Q12H
  3. ATIVAN [Concomitant]
     Indication: PANIC ATTACK
     Dosage: 2 MG, PRN
  4. CATAPRES                           /00171101/ [Concomitant]
     Indication: HYPERTENSION
     Dosage: 0.2 MG, WEEKLY
     Route: 062
     Dates: start: 2003
  5. AMANTADINE [Concomitant]
     Indication: PRODUCT USED FOR UNKNOWN INDICATION
     Dosage: 100 MG, BID
  6. HYDROMORPHONE [Concomitant]
     Indication: PAIN
     Dosage: 16 MG, Q6H
     Dates: start: 2002
  7. MELATONIN [Concomitant]
     Indication: SLEEP DISORDER
     Dosage: 5 MG, UNK
  8. VITAMIN D                          /00107901/ [Concomitant]
     Dosage: 2000 UNIT, UNK
  9. ASPIRIN [Concomitant]
     Dosage: 81 MG, UNK
  10. ANTITHYROID PREPARATIONS [Concomitant]
     Indication: HYPOTHYROIDISM
     Dosage: 025 GRAM, DAILY
     Dates: start: 20090318

REACTIONS (7)
  - Joint swelling [Recovered/Resolved]
  - Swelling [Recovered/Resolved]
  - Oedema peripheral [Recovered/Resolved]
  - Oedema [Recovered/Resolved]
  - Hyperhidrosis [Unknown]
  - Drug effect decreased [Unknown]
  - Drug effect delayed [Unknown]
